FAERS Safety Report 18743574 (Version 2)
Quarter: 2021Q2

REPORT INFORMATION
  Report Type: Other
  Country: US (occurrence: US)
  Receive Date: 20210115
  Receipt Date: 20210406
  Transmission Date: 20210717
  Serious: Yes (Hospitalization, Other)
  Sender: FDA-Public Use
  Company Number: US-INTERCEPT-PM2021000033

PATIENT
  Age: 58 Year
  Sex: Male

DRUGS (2)
  1. OCALIVA [Suspect]
     Active Substance: OBETICHOLIC ACID
     Indication: PRIMARY BILIARY CHOLANGITIS
     Dosage: 5 MILLIGRAM, QD
     Route: 048
     Dates: start: 20170810
  2. OCALIVA [Suspect]
     Active Substance: OBETICHOLIC ACID
     Dosage: 5 MILLIGRAM, QW
     Route: 048
     Dates: start: 2017

REACTIONS (13)
  - Helicobacter infection [Unknown]
  - Ascites [Unknown]
  - Hospitalisation [Unknown]
  - Acute kidney injury [Unknown]
  - Drainage [Unknown]
  - Therapy interrupted [Not Recovered/Not Resolved]
  - Transplant evaluation [Unknown]
  - Malaise [Unknown]
  - Abdominal distension [Unknown]
  - Chronic gastritis [Unknown]
  - Sepsis [Unknown]
  - Chronic kidney disease [Unknown]
  - Paracentesis [Unknown]

NARRATIVE: CASE EVENT DATE: 202011
